FAERS Safety Report 8055773-6 (Version None)
Quarter: 2011Q4

REPORT INFORMATION
  Report Type: 
  Country: None (occurrence: None)
  Receive Date: 20111215
  Receipt Date: 20110324
  Transmission Date: 20120403
  Serious: Yes (Hospitalization)
  Sender: FDA-Public Use
  Company Number: 1000019519

PATIENT
  Age: 83 Year
  Sex: Male

DRUGS (10)
  1. SIMVASTATIN [Concomitant]
  2. ARICEPT [Concomitant]
  3. VALIUM [Concomitant]
  4. LISINOPRIL [Concomitant]
  5. GLYBURIDE [Concomitant]
  6. ATENOLOL [Concomitant]
  7. LEVOTHYROXINE (LEVOTHYROXINE SODIUM) (LEVOTHYROXINE SODIUM) [Concomitant]
  8. NAMENDA [Suspect]
     Indication: DEMENTIA
     Dosage: 195 MG (195 MG,2 IN 1 D),ORAL
     Route: 048
     Dates: start: 20110316, end: 20110317
  9. ASPIRIN [Concomitant]
  10. DILTIAZEM (DILTIAZEM HYDROCHLORIDE) (DILTIAZEM HYDROCHLORIDE) [Concomitant]

REACTIONS (2)
  - ACCIDENTAL OVERDOSE [None]
  - DIZZINESS [None]
